FAERS Safety Report 17535041 (Version 2)
Quarter: 2020Q1

REPORT INFORMATION
  Report Type: Report from Study
  Country: None (occurrence: CA)
  Receive Date: 20200313
  Receipt Date: 20200320
  Transmission Date: 20200409
  Serious: Yes (Other)
  Sender: FDA-Public Use
  Company Number: CA-ABBVIE-20K-028-3311059-00

PATIENT
  Sex: Female

DRUGS (1)
  1. HUMIRA [Suspect]
     Active Substance: ADALIMUMAB
     Indication: ANKYLOSING SPONDYLITIS
     Route: 058
     Dates: start: 20180413, end: 20200208

REACTIONS (4)
  - Blood iron decreased [Unknown]
  - Sinusitis [Unknown]
  - Haemoglobin decreased [Unknown]
  - Menorrhagia [Unknown]

NARRATIVE: CASE EVENT DATE: 2020
